FAERS Safety Report 8809101 (Version 1)
Quarter: 2012Q4

REPORT INFORMATION
  Report Type: Spontaneous
  Country: US (occurrence: None)
  Receive Date: 20120920
  Receipt Date: 20120920
  Transmission Date: 20130627
  Serious: Yes (Life-Threatening, Hospitalization, Other)
  Sender: FDA-Public Use
  Company Number: 1408670

PATIENT

DRUGS (2)
  1. DEFEROXAMINE [Suspect]
     Indication: CHELATION THERAPY
     Route: 041
     Dates: start: 20120628, end: 20120628
  2. SODIUM CHLORIDE 0.9% FLUSH [Suspect]
     Indication: CHELATION THERAPY
     Route: 041
     Dates: start: 20120628, end: 20120628

REACTIONS (3)
  - Dyspnoea [None]
  - Device malfunction [None]
  - Incorrect drug administration rate [None]
